FAERS Safety Report 15858794 (Version 2)
Quarter: 2019Q1

REPORT INFORMATION
  Report Type: Report from Study
  Country: US (occurrence: US)
  Receive Date: 20190123
  Receipt Date: 20190130
  Transmission Date: 20190417
  Serious: Yes (Death, Other)
  Sender: FDA-Public Use
  Company Number: US-GILEAD-2019-0386169

PATIENT
  Age: 62 Year
  Sex: Male

DRUGS (4)
  1. ZENPEP [Concomitant]
     Active Substance: PANCRELIPASE AMYLASE\PANCRELIPASE LIPASE\PANCRELIPASE PROTEASE
  2. SODIUM CHLORIDE. [Concomitant]
     Active Substance: SODIUM CHLORIDE
  3. AZTREONAM LYSINE [Suspect]
     Active Substance: AZTREONAM LYSINE
     Indication: CYSTIC FIBROSIS LUNG
     Dosage: 75 MG
     Route: 055
     Dates: start: 20130613
  4. CEFTAZIDIME. [Concomitant]
     Active Substance: CEFTAZIDIME

REACTIONS (1)
  - Death [Fatal]

NARRATIVE: CASE EVENT DATE: 20190116
